FAERS Safety Report 23282693 (Version 2)
Quarter: 2025Q4

REPORT INFORMATION
  Report Type: Report from Study
  Country: US (occurrence: US)
  Receive Date: 20231211
  Receipt Date: 20251002
  Transmission Date: 20260117
  Serious: No
  Sender: SANOFI AVENTIS
  Company Number: US-SANOFI-01863717

PATIENT
  Age: 14 Year
  Sex: Female

DRUGS (3)
  1. CEREZYME [Suspect]
     Active Substance: IMIGLUCERASE
     Indication: Gaucher^s disease type III
     Dosage: 4400 MG, QOW
     Route: 065
     Dates: start: 20101203, end: 20231102
  2. CEREZYME [Suspect]
     Active Substance: IMIGLUCERASE
     Indication: Gaucher^s disease
     Dosage: 4400 MG, QOW
     Route: 065
     Dates: start: 20231130
  3. CEREZYME [Suspect]
     Active Substance: IMIGLUCERASE
     Dosage: 5200 TOTAL DOSE ADMINISTERED, QOW
     Route: 042

REACTIONS (2)
  - Malaise [Unknown]
  - Off label use [Unknown]

NARRATIVE: CASE EVENT DATE: 20101203
